FAERS Safety Report 7504599-8 (Version None)
Quarter: 2011Q2

REPORT INFORMATION
  Report Type: 
  Country: None (occurrence: None)
  Receive Date: 20110525
  Receipt Date: 20110518
  Transmission Date: 20111010
  Serious: Yes (Life-Threatening, Hospitalization)
  Sender: FDA-Public Use
  Company Number: JP-CELGENEUS-087-50794-11052607

PATIENT
  Sex: Female

DRUGS (2)
  1. VIDAZA [Suspect]
     Dosage: 92 MILLIGRAM
     Route: 051
     Dates: start: 20110330, end: 20110405
  2. VIDAZA [Suspect]
     Dosage: 45 MILLIGRAM
     Route: 051
     Dates: start: 20110505

REACTIONS (2)
  - LIVER ABSCESS [None]
  - PNEUMONIA [None]
